FAERS Safety Report 5906754-7 (Version None)
Quarter: 2008Q3

REPORT INFORMATION
  Report Type: 
  Country: None (occurrence: None)
  Receive Date: 20080930
  Receipt Date: 20080916
  Transmission Date: 20090109
  Serious: Yes (Life-Threatening, Hospitalization)
  Sender: FDA-Public Use
  Company Number: 1000001060

PATIENT
  Age: 77 Year
  Sex: Male

DRUGS (10)
  1. ESCITALOPRAM [Suspect]
     Indication: DEPRESSION
     Dosage: ORAL; (ONCE), ORAL
     Route: 048
     Dates: start: 20080626, end: 20080626
  2. ESCITALOPRAM [Suspect]
     Indication: DEPRESSION
     Dosage: ORAL; (ONCE), ORAL
     Route: 048
     Dates: end: 20080626
  3. PROZAC [Suspect]
     Dosage: (14 DOSAGE FORMS, ONCE) ,ORAL
     Route: 048
     Dates: start: 20080626, end: 20080626
  4. TENORMIN [Suspect]
     Dosage: (14 DOSAGE FORMS, ONCE) ,ORAL
     Route: 048
     Dates: start: 20080626, end: 20080626
  5. PREVISCAN (20 MILLIGRAM) [Suspect]
     Indication: ATRIAL FLUTTER
     Dosage: ORAL
     Route: 048
     Dates: start: 20070101, end: 20080628
  6. CORTANCYL (5 MILLIGRAM, TABLETS) [Suspect]
     Dosage: (50 MG, ONCE) ,ORAL
     Route: 048
     Dates: start: 20080626, end: 20080626
  7. PREVISCAN [Suspect]
     Dates: start: 20080630
  8. HEMIGOXINE [Concomitant]
  9. HAVLANE [Concomitant]
  10. DI-ANTALVIC [Concomitant]

REACTIONS (7)
  - BRADYCARDIA [None]
  - COMA [None]
  - DRUG INTERACTION [None]
  - INTERNATIONAL NORMALISED RATIO INCREASED [None]
  - MULTIPLE DRUG OVERDOSE INTENTIONAL [None]
  - SINUS ARREST [None]
  - SUICIDE ATTEMPT [None]
